FAERS Safety Report 5367760-7 (Version None)
Quarter: 2007Q2

REPORT INFORMATION
  Report Type: 
  Country: None (occurrence: None)
  Receive Date: 20070622
  Receipt Date: 20070315
  Transmission Date: 20071010
  Serious: No
  Sender: FDA-Public Use
  Company Number: US-ASTRAZENECA-2007UW05003

PATIENT
  Sex: Female

DRUGS (5)
  1. PULMICORT [Suspect]
     Route: 055
     Dates: start: 20061201
  2. ULTRAM [Concomitant]
  3. ZINC [Concomitant]
  4. KLONOPIN [Concomitant]
  5. PRILOSEC OTC [Concomitant]

REACTIONS (4)
  - DRUG INEFFECTIVE [None]
  - EAR PAIN [None]
  - GAIT DISTURBANCE [None]
  - PAIN [None]
